FAERS Safety Report 5563626-8 (Version None)
Quarter: 2007Q4

REPORT INFORMATION
  Report Type: 
  Country: None (occurrence: None)
  Receive Date: 20071217
  Receipt Date: 20071203
  Transmission Date: 20080405
  Serious: Yes (Hospitalization)
  Sender: FDA-Public Use
  Company Number: US-ELI_LILLY_AND_COMPANY-US200712000331

PATIENT
  Sex: Female

DRUGS (1)
  1. EVISTA [Suspect]
     Indication: BONE DENSITY DECREASED
     Dosage: 60 MG, UNK
     Dates: start: 20071101, end: 20071202

REACTIONS (4)
  - GALLBLADDER OPERATION [None]
  - PAIN [None]
  - PRURITUS GENERALISED [None]
  - VOMITING [None]
